FAERS Safety Report 8564705-3 (Version None)
Quarter: 2012Q3

REPORT INFORMATION
  Report Type: 
  Country: None (occurrence: None)
  Receive Date: 20120803
  Receipt Date: 20120629
  Transmission Date: 20120928
  Serious: No
  Sender: FDA-Public Use
  Company Number: CO-JNJFOC-20120801437

PATIENT

DRUGS (1)
  1. REMICADE [Suspect]
     Indication: RHEUMATOID ARTHRITIS
     Dosage: 0,2,6,14 AND 22 (32) WEEKS
     Route: 042

REACTIONS (1)
  - ANTINUCLEAR ANTIBODY POSITIVE [None]
